FAERS Safety Report 24571318 (Version 1)
Quarter: 2024Q4

REPORT INFORMATION
  Report Type: Spontaneous
  Country: EG (occurrence: EG)
  Receive Date: 20241101
  Receipt Date: 20241101
  Transmission Date: 20250115
  Serious: Yes (Other)
  Sender: HIKMA PHARMACEUTICALS USA INC.
  Company Number: EG-HIKMA PHARMACEUTICALS-EG-H14001-24-10087

PATIENT
  Age: 55 Year
  Sex: Female
  Weight: 45 kg

DRUGS (2)
  1. CARBOPLATIN [Suspect]
     Active Substance: CARBOPLATIN
     Indication: Ovarian cancer
     Dosage: 531 MILLIGRAM /D1/ 3W
     Route: 041
  2. PACLITAXEL [Suspect]
     Active Substance: PACLITAXEL
     Indication: Ovarian cancer
     Dosage: 124 MILLIGRAM /D1,8,15/ 3W
     Route: 041

REACTIONS (4)
  - Bone pain [Unknown]
  - Dry mouth [Unknown]
  - Thrombocytopenia [Unknown]
  - Aspartate aminotransferase increased [Unknown]

NARRATIVE: CASE EVENT DATE: 20240820
